FAERS Safety Report 6183024-6 (Version None)
Quarter: 2009Q2

REPORT INFORMATION
  Report Type: 
  Country: None (occurrence: None)
  Receive Date: 20090505
  Receipt Date: 20090423
  Transmission Date: 20091009
  Serious: Yes (Hospitalization)
  Sender: FDA-Public Use
  Company Number: WAES 0904USA04282

PATIENT
  Age: 33 Year
  Sex: Female

DRUGS (10)
  1. MODURETIC 5-50 [Suspect]
     Dosage: PO
     Route: 048
     Dates: start: 20081201, end: 20090212
  2. RISEDRONATE SODIUM [Suspect]
     Indication: OSTEOPENIA
     Dosage: PO
     Route: 048
     Dates: start: 20081201, end: 20090212
  3. CALCIUM CARBONATE (+) CHOLECALCIFEROL [Suspect]
     Indication: OSTEOPENIA
     Dates: start: 20081201, end: 20090212
  4. VASOTEC [Concomitant]
  5. ATORVASTATIN CALCIUM [Concomitant]
  6. CINITAPRIDE [Concomitant]
  7. DARBEPOETIN ALFA [Concomitant]
  8. FERROUSS04 [Concomitant]
  9. INSULIN DETEMIR [Concomitant]
  10. TELMISARTAN [Concomitant]

REACTIONS (4)
  - HAEMODIALYSIS [None]
  - INTERCAPILLARY GLOMERULOSCLEROSIS [None]
  - NEPHROCALCINOSIS [None]
  - TUBULOINTERSTITIAL NEPHRITIS [None]
